FAERS Safety Report 16664432 (Version 2)
Quarter: 2019Q3

REPORT INFORMATION
  Report Type: Spontaneous
  Country: JP (occurrence: JP)
  Receive Date: 20190802
  Receipt Date: 20190806
  Transmission Date: 20191004
  Serious: Yes (Hospitalization, Other)
  Sender: FDA-Public Use
  Company Number: JP-ALLERGAN-1931248US

PATIENT
  Sex: Female

DRUGS (4)
  1. LOTRIGA [Concomitant]
     Active Substance: OMEGA-3-ACID ETHYL ESTERS
     Indication: HYPERLIPIDAEMIA
     Dosage: 2 G, QD
     Route: 048
  2. RISEDRONATE SODIUM - BP [Suspect]
     Active Substance: RISEDRONATE SODIUM
     Indication: OSTEOPOROSIS
     Dosage: 75 MG, Q MONTH
     Route: 048
     Dates: start: 20190715, end: 20190715
  3. REZALTAS [Concomitant]
     Active Substance: AZELNIDIPINE\OLMESARTAN MEDOXOMIL
     Indication: HYPERTENSION
     Dosage: 1 DF, QD
     Route: 048
     Dates: end: 20190719
  4. EDIROL [Concomitant]
     Active Substance: ELDECALCITOL
     Indication: OSTEOPOROSIS
     Dosage: 0.75 MG, QD
     Route: 048

REACTIONS (10)
  - Deafness unilateral [Unknown]
  - Blood pressure decreased [Unknown]
  - Dizziness [Unknown]
  - Decreased appetite [Unknown]
  - Anaphylactic shock [Recovered/Resolved]
  - Malaise [Unknown]
  - Pain [Unknown]
  - Acute kidney injury [Unknown]
  - Cachexia [Unknown]
  - Bone pain [Unknown]

NARRATIVE: CASE EVENT DATE: 20190715
